FAERS Safety Report 4609670-6 (Version None)
Quarter: 2005Q1

REPORT INFORMATION
  Report Type: 
  Country: None (occurrence: None)
  Receive Date: 20050314
  Receipt Date: 20050303
  Transmission Date: 20050727
  Serious: Yes (Hospitalization)
  Sender: FDA-Public Use
  Company Number: 2005PK00365

PATIENT
  Age: 65 Year
  Sex: Female
  Weight: 66 kg

DRUGS (6)
  1. ARIMIDEX [Suspect]
     Indication: BREAST CANCER
     Dosage: 1 MG DAILY PO
     Route: 048
     Dates: start: 20030701, end: 20040701
  2. ARIMIDEX [Suspect]
     Indication: BREAST CANCER
     Dosage: 1 MG DAILY PO
     Route: 048
     Dates: start: 20040728
  3. NOLVADEX [Concomitant]
  4. FARESTON [Concomitant]
  5. EFECTIN [Concomitant]
  6. TRITTICO [Concomitant]

REACTIONS (1)
  - UTERINE POLYP [None]
